FAERS Safety Report 8187333-0 (Version None)
Quarter: 2012Q1

REPORT INFORMATION
  Report Type: 
  Country: None (occurrence: None)
  Receive Date: 20120306
  Receipt Date: 20120223
  Transmission Date: 20120608
  Serious: Yes (Other)
  Sender: FDA-Public Use
  Company Number: US-ROCHE-795251

PATIENT
  Sex: Female
  Weight: 70.37 kg

DRUGS (2)
  1. ACCUTANE [Suspect]
     Indication: ACNE
     Route: 065
     Dates: start: 20060801, end: 20070301
  2. CLARAVIS [Suspect]
     Indication: ACNE
     Route: 065
     Dates: start: 20060801, end: 20070301

REACTIONS (2)
  - INJURY [None]
  - COLITIS ULCERATIVE [None]
